FAERS Safety Report 19933002 (Version 1)
Quarter: 2021Q4

REPORT INFORMATION
  Report Type: Spontaneous
  Country: US (occurrence: US)
  Receive Date: 20211006
  Receipt Date: 20211006
  Transmission Date: 20220303
  Serious: No
  Sender: FDA-Public Use
  Company Number: None

PATIENT
  Sex: Male

DRUGS (1)
  1. TREMFYA [Suspect]
     Active Substance: GUSELKUMAB
     Indication: Psoriasis
     Dosage: ?          OTHER FREQUENCY:EVERY8WEEKS ;
     Route: 058
     Dates: start: 20200418, end: 20211005

REACTIONS (1)
  - Drug ineffective [None]
